FAERS Safety Report 21872628 (Version 1)
Quarter: 2023Q1

REPORT INFORMATION
  Report Type: Spontaneous
  Country: JP (occurrence: JP)
  Receive Date: 20230117
  Receipt Date: 20230117
  Transmission Date: 20230418
  Serious: Yes (Death, Other)
  Sender: FDA-Public Use
  Company Number: JP-TAKEDA-2023TJP000407

PATIENT
  Age: 8 Decade
  Sex: Male

DRUGS (4)
  1. ADCETRIS [Suspect]
     Active Substance: BRENTUXIMAB VEDOTIN
     Indication: Hodgkin^s disease
     Dosage: 1.8 MILLIGRAM/KILOGRAM, Q2WEEKS
     Route: 041
     Dates: start: 20221124
  2. DOXORUBICIN HYDROCHLORIDE [Suspect]
     Active Substance: DOXORUBICIN HYDROCHLORIDE
     Indication: Product used for unknown indication
     Dosage: UNK
     Route: 065
  3. VINBLASTINE SULFATE [Suspect]
     Active Substance: VINBLASTINE SULFATE
     Indication: Product used for unknown indication
     Dosage: UNK
     Route: 065
  4. DACARBAZINE [Suspect]
     Active Substance: DACARBAZINE
     Indication: Product used for unknown indication
     Dosage: UNK
     Route: 065

REACTIONS (2)
  - Intestinal perforation [Fatal]
  - Overdose [Unknown]

NARRATIVE: CASE EVENT DATE: 20221124
